FAERS Safety Report 5083866-4 (Version None)
Quarter: 2006Q3

REPORT INFORMATION
  Report Type: 
  Country: None (occurrence: None)
  Receive Date: 20060727
  Receipt Date: 20060417
  Transmission Date: 20061208
  Serious: Yes (Other)
  Sender: FDA-Public Use
  Company Number: 2006052546

PATIENT
  Sex: Female
  Weight: 51.7101 kg

DRUGS (1)
  1. LYRICA [Suspect]
     Indication: TRIGEMINAL NEURALGIA
     Dosage: 2 IN 1 D
     Dates: start: 20060412

REACTIONS (2)
  - DIZZINESS [None]
  - FEELING ABNORMAL [None]
